FAERS Safety Report 6264666-6 (Version None)
Quarter: 2009Q3

REPORT INFORMATION
  Report Type: 
  Country: None (occurrence: None)
  Receive Date: 20090710
  Receipt Date: 20090701
  Transmission Date: 20100115
  Serious: Yes (Hospitalization)
  Sender: FDA-Public Use
  Company Number: JP-ASTRAZENECA-2009SE04004

PATIENT
  Age: 40 Year
  Sex: Female

DRUGS (3)
  1. NOLVADEX [Suspect]
     Indication: BREAST CANCER
     Dosage: DOSE UNKNOWN
     Route: 048
     Dates: start: 20080301
  2. DOCETAXEL HYDRATE [Concomitant]
     Dosage: DOSE UNKNOWN
     Route: 065
     Dates: start: 20080101
  3. CYCLOPHOSPHAMIDE [Concomitant]
     Dosage: DOSE UNKNOWN
     Route: 065
     Dates: start: 20080101

REACTIONS (1)
  - ORGANISING PNEUMONIA [None]
